FAERS Safety Report 6343046-9 (Version None)
Quarter: 2009Q3

REPORT INFORMATION
  Report Type: 
  Country: None (occurrence: None)
  Receive Date: 20090908
  Receipt Date: 20090826
  Transmission Date: 20100115
  Serious: Yes (Hospitalization)
  Sender: FDA-Public Use
  Company Number: GB-ROCHE-653142

PATIENT
  Age: 12 Year
  Sex: Female

DRUGS (2)
  1. TAMIFLU [Suspect]
     Indication: DRUG USE FOR UNKNOWN INDICATION
     Route: 065
     Dates: start: 20090713, end: 20090715
  2. AMOXICILLIN [Concomitant]

REACTIONS (5)
  - COUGH [None]
  - FLUSHING [None]
  - MALAISE [None]
  - PHOTOPHOBIA [None]
  - RASH [None]
